FAERS Safety Report 5560134-5 (Version None)
Quarter: 2007Q4

REPORT INFORMATION
  Report Type: 
  Country: None (occurrence: None)
  Receive Date: 20071214
  Receipt Date: 20071022
  Transmission Date: 20080405
  Serious: No
  Sender: FDA-Public Use
  Company Number: US-ABBOTT-07P-163-0421947-00

PATIENT
  Sex: Female

DRUGS (2)
  1. HUMIRA [Suspect]
     Indication: RHEUMATOID ARTHRITIS
     Dosage: SYRINGE
     Route: 058
     Dates: start: 20070501, end: 20071001
  2. HUMIRA [Suspect]
     Dosage: PEN
     Route: 058
     Dates: start: 20071001

REACTIONS (3)
  - ACCIDENTAL EXPOSURE [None]
  - INJECTION SITE IRRITATION [None]
  - INJECTION SITE PAIN [None]
